FAERS Safety Report 24779515 (Version 1)
Quarter: 2024Q4

REPORT INFORMATION
  Report Type: Spontaneous
  Country: US (occurrence: US)
  Receive Date: 20241226
  Receipt Date: 20241226
  Transmission Date: 20250115
  Serious: No
  Sender: INCYTE
  Company Number: US-EVENT-000868

PATIENT

DRUGS (1)
  1. MONJUVI [Suspect]
     Active Substance: TAFASITAMAB-CXIX
     Indication: High-grade B-cell lymphoma
     Dosage: UNK
     Route: 065
     Dates: end: 20241127

REACTIONS (4)
  - Haemoptysis [Not Recovered/Not Resolved]
  - Cough [Not Recovered/Not Resolved]
  - Product dose omission issue [Unknown]
  - Off label use [Unknown]
